FAERS Safety Report 6341379-3 (Version None)
Quarter: 2009Q3

REPORT INFORMATION
  Report Type: 
  Country: None (occurrence: None)
  Receive Date: 20090904
  Receipt Date: 20090825
  Transmission Date: 20100115
  Serious: Yes (Hospitalization)
  Sender: FDA-Public Use
  Company Number: US-ELI_LILLY_AND_COMPANY-US200807003371

PATIENT
  Sex: Male
  Weight: 73.016 kg

DRUGS (18)
  1. PEMETREXED [Suspect]
     Indication: NEOPLASM MALIGNANT
     Dosage: 500 MG/M2, OTHER
     Route: 042
     Dates: start: 20080625, end: 20080711
  2. PEMETREXED [Suspect]
     Dosage: 500 MG/M2, OTHER
     Route: 042
     Dates: start: 20080730, end: 20080730
  3. LIPITOR [Concomitant]
     Indication: HYPERLIPIDAEMIA
     Dates: start: 20070101
  4. GLIPIZIDE [Concomitant]
     Indication: DIABETES MELLITUS
     Dates: start: 20050101
  5. AVANDIA [Concomitant]
     Indication: DIABETES MELLITUS
  6. METFORMIN HCL [Concomitant]
     Indication: DIABETES MELLITUS
     Dates: start: 20050101
  7. PREDNISONE [Concomitant]
     Dates: start: 20071001
  8. XANAX [Concomitant]
     Indication: ANXIETY
     Dates: start: 20080616
  9. PAXIL [Concomitant]
     Indication: DEPRESSION
  10. TUSSINOL DAY-TIME COUGH + COLD [Concomitant]
     Indication: COUGH
  11. FOLIC ACID [Concomitant]
     Indication: SUPPLEMENTATION THERAPY
  12. VITAMIN B-12 [Concomitant]
     Indication: SUPPLEMENTATION THERAPY
  13. DECADRON [Concomitant]
     Indication: SUPPLEMENTATION THERAPY
     Dates: start: 20080702
  14. SYMBICORT [Concomitant]
     Dates: start: 20071001
  15. NASONEX [Concomitant]
     Dates: start: 20071001
  16. ARANESP [Concomitant]
     Dates: start: 20071001
  17. BLOOD CELLS, PACKED HUMAN [Concomitant]
     Indication: ANAEMIA
     Dates: start: 20080708, end: 20080708
  18. MEGESTROL ACETATE [Concomitant]
     Indication: INCREASED APPETITE
     Dosage: UNK, UNK
     Dates: start: 20080702

REACTIONS (2)
  - FALL [None]
  - SUBARACHNOID HAEMORRHAGE [None]
